FAERS Safety Report 8196933-3 (Version None)
Quarter: 2012Q1

REPORT INFORMATION
  Report Type: 
  Country: None (occurrence: None)
  Receive Date: 20120309
  Receipt Date: 20120301
  Transmission Date: 20120608
  Serious: Yes (Hospitalization)
  Sender: FDA-Public Use
  Company Number: US-BAYER-2011-103489

PATIENT
  Age: 48 Year
  Sex: Female
  Weight: 68 kg

DRUGS (8)
  1. VERAPAMIL [Concomitant]
     Dosage: UNK
  2. NSAID'S [Concomitant]
     Dosage: UNK
     Dates: start: 19990101
  3. MULTI-VITAMIN [Concomitant]
  4. YASMIN [Suspect]
     Dosage: UNK
     Route: 048
     Dates: start: 20010101, end: 20071201
  5. NAPROXEN (ALEVE) [Concomitant]
     Indication: HEADACHE
     Dosage: UNK
     Dates: start: 20071203
  6. XANAX [Concomitant]
  7. LISINOPRIL [Concomitant]
     Dosage: UNK
     Dates: start: 19970101
  8. ALBUTEROL [Concomitant]
     Dosage: UNK
     Dates: start: 20030101

REACTIONS (6)
  - EMOTIONAL DISTRESS [None]
  - ANXIETY [None]
  - GENERAL PHYSICAL HEALTH DETERIORATION [None]
  - PAIN [None]
  - HEPATIC HAEMATOMA [None]
  - INJURY [None]
